FAERS Safety Report 6294864-7 (Version None)
Quarter: 2009Q3

REPORT INFORMATION
  Report Type: 
  Country: None (occurrence: None)
  Receive Date: 20090731
  Receipt Date: 20090731
  Transmission Date: 20100115
  Serious: Yes (Hospitalization)
  Sender: FDA-Public Use
  Company Number: None

PATIENT
  Sex: Male
  Weight: 86 kg

DRUGS (14)
  1. SUNITINIB [Suspect]
     Indication: NON-SMALL CELL LUNG CANCER
     Dosage: 37.5 MG, DAILY, ORAL
     Route: 048
     Dates: start: 20090703
  2. SUNITINIB [Suspect]
  3. ERLOTINIB [Suspect]
     Indication: NON-SMALL CELL LUNG CANCER
     Dosage: 150 MG, DAILY, ORAL
     Route: 048
     Dates: start: 20090703
  4. CHOLECALCIFEROL [Concomitant]
  5. METOPROLOL (TOPROL) [Concomitant]
  6. HYDROMORPHONE HCL [Concomitant]
  7. CLINDAMYCIN [Concomitant]
  8. FOLIC ACID [Concomitant]
  9. DIGOXIN [Concomitant]
  10. ACETAMINOPHEN AND HYDROCODONE BITARTRATE [Concomitant]
  11. ACETAMINOPHEN [Concomitant]
  12. MULTIVITAMIN WITH MINERALS [Concomitant]
  13. SENNA-DOCUSATE [Concomitant]
  14. FINASTERIDE [Concomitant]

REACTIONS (7)
  - ATRIAL FIBRILLATION [None]
  - CONDITION AGGRAVATED [None]
  - DYSPNOEA [None]
  - FATIGUE [None]
  - LEFT VENTRICULAR DYSFUNCTION [None]
  - MALAISE [None]
  - OEDEMA PERIPHERAL [None]
